FAERS Safety Report 8592844 (Version 2)
Quarter: 2013Q3

REPORT INFORMATION
  Report Type: Spontaneous
  Country: JP (occurrence: JP)
  Receive Date: 20120603
  Receipt Date: 20130913
  Transmission Date: 20140515
  Serious: Yes (Death)
  Sender: FDA-Public Use
  Company Number: JP-AMGEN-JPNSP2012032759

PATIENT
  Age: 76 Year
  Sex: Female

DRUGS (3)
  1. NPLATE [Suspect]
     Indication: IMMUNE THROMBOCYTOPENIC PURPURA
     Dosage: 40 MUG, QD
     Route: 058
     Dates: start: 20120403, end: 20120403
  2. PREDONINE [Concomitant]
     Dosage: 8 DF, UNK
     Route: 048
     Dates: start: 20120223, end: 20120409
  3. IMURAN                             /00001501/ [Concomitant]
     Route: 048
     Dates: start: 20120327, end: 20120409

REACTIONS (1)
  - Cerebral infarction [Fatal]
